FAERS Safety Report 22073372 (Version 1)
Quarter: 2023Q1

REPORT INFORMATION
  Report Type: Spontaneous
  Country: DE (occurrence: DE)
  Receive Date: 20230308
  Receipt Date: 20230308
  Transmission Date: 20230418
  Serious: Yes (Other)
  Sender: FDA-Public Use
  Company Number: DE-002147023-NVSC2023DE050323

PATIENT
  Age: 52 Year
  Sex: Female

DRUGS (2)
  1. ELTROMBOPAG OLAMINE [Suspect]
     Active Substance: ELTROMBOPAG OLAMINE
     Indication: Product used for unknown indication
     Dosage: UNK, QD (1-0-0)
     Route: 065
     Dates: start: 202201
  2. DEXAMETHASONE [Suspect]
     Active Substance: DEXAMETHASONE
     Indication: Product used for unknown indication
     Dosage: UNK (AROUND 4.5 YEARS)
     Route: 065
     Dates: end: 202112

REACTIONS (3)
  - Hyperthyroidism [Unknown]
  - Weight decreased [Not Recovered/Not Resolved]
  - Platelet count increased [Recovering/Resolving]

NARRATIVE: CASE EVENT DATE: 20220101
